FAERS Safety Report 4497177-9 (Version None)
Quarter: 2004Q4

REPORT INFORMATION
  Report Type: 
  Country: None (occurrence: None)
  Receive Date: 20041105
  Receipt Date: 20041022
  Transmission Date: 20050328
  Serious: Yes (Hospitalization, Other)
  Sender: FDA-Public Use
  Company Number: 2004S1002812

PATIENT
  Age: 24 Year
  Sex: Female
  Weight: 68.0396 kg

DRUGS (7)
  1. EXTENDED PHENYTOIN SODIUM [Suspect]
     Indication: COMPLEX PARTIAL SEIZURES
     Dosage: 300MG QHS, ORAL
     Route: 048
     Dates: start: 20040428, end: 20040914
  2. LAMOTRIGINE [Concomitant]
  3. CALCIUM [Concomitant]
  4. VITAMIN D WITH MINERALS [Concomitant]
  5. MULTIVITAMIN [Concomitant]
  6. MULTIVITAMIN WITH IRON [Concomitant]
  7. ETHINYL ESTRADIOL AND NORETHINDRONE [Concomitant]

REACTIONS (1)
  - COMPLEX PARTIAL SEIZURES [None]
